FAERS Safety Report 12324214 (Version 1)
Quarter: 2016Q2

REPORT INFORMATION
  Report Type: Spontaneous
  Country: US (occurrence: US)
  Receive Date: 20160502
  Receipt Date: 20160502
  Transmission Date: 20160815
  Serious: No
  Sender: FDA-Public Use
  Company Number: US-ABBVIE-15P-163-1505765-00

PATIENT
  Age: 52 Year
  Sex: Male
  Weight: 108.96 kg

DRUGS (3)
  1. HYDROCHLOROTHIAZIDE AND LISINOPRIL [Concomitant]
     Active Substance: HYDROCHLOROTHIAZIDE\LISINOPRIL
     Indication: HYPERTENSION
     Dosage: 20/25 MG
  2. GEMFIBROZIL. [Concomitant]
     Active Substance: GEMFIBROZIL
     Indication: PRODUCT USED FOR UNKNOWN INDICATION
     Route: 048
  3. ANDROGEL [Suspect]
     Active Substance: TESTOSTERONE
     Indication: BLOOD TESTOSTERONE DECREASED
     Dosage: 2 PUMPS DAILY
     Route: 061
     Dates: start: 201507

REACTIONS (10)
  - Product packaging quantity issue [Unknown]
  - Drug dose omission [Not Recovered/Not Resolved]
  - Pre-existing condition improved [Not Recovered/Not Resolved]
  - Therapeutic response unexpected [Not Recovered/Not Resolved]
  - Fatigue [Recovering/Resolving]
  - Device leakage [Unknown]
  - Device issue [Unknown]
  - Ear infection [Recovered/Resolved]
  - Drug effect incomplete [Not Recovered/Not Resolved]
  - Laceration [Recovered/Resolved]

NARRATIVE: CASE EVENT DATE: 201507
